FAERS Safety Report 18346996 (Version 2)
Quarter: 2020Q4

REPORT INFORMATION
  Report Type: Spontaneous
  Country: US (occurrence: US)
  Receive Date: 20201006
  Receipt Date: 20201211
  Transmission Date: 20210114
  Serious: Yes (Hospitalization, Other)
  Sender: FDA-Public Use
  Company Number: US-ABBVIE-20K-163-3590438-00

PATIENT
  Sex: Male
  Weight: 113.5 kg

DRUGS (4)
  1. HUMIRA [Suspect]
     Active Substance: ADALIMUMAB
     Indication: PSORIASIS
     Dosage: SEVERAL YEARS
     Route: 058
     Dates: start: 2015
  2. SERTRALINE [Concomitant]
     Active Substance: SERTRALINE HYDROCHLORIDE
     Indication: DEPRESSION
  3. ATORVASTATIN [Concomitant]
     Active Substance: ATORVASTATIN
     Indication: BLOOD CHOLESTEROL INCREASED
  4. SAW PALMETTO [Concomitant]
     Active Substance: HERBALS\SAW PALMETTO
     Indication: URINARY RETENTION

REACTIONS (10)
  - Hypersomnia [Not Recovered/Not Resolved]
  - Abdominal pain upper [Recovered/Resolved]
  - Dementia Alzheimer^s type [Not Recovered/Not Resolved]
  - Pollakiuria [Not Recovered/Not Resolved]
  - Intra-abdominal fluid collection [Recovered/Resolved]
  - Appendicitis [Recovered/Resolved]
  - Medical device removal [Recovered/Resolved]
  - Urinary tract infection [Recovered/Resolved]
  - Renal disorder [Not Recovered/Not Resolved]
  - Food intolerance [Recovered/Resolved]

NARRATIVE: CASE EVENT DATE: 2015
